FAERS Safety Report 11241869 (Version 1)
Quarter: 2015Q3

REPORT INFORMATION
  Report Type: Spontaneous
  Country: TW (occurrence: TW)
  Receive Date: 20150706
  Receipt Date: 20150706
  Transmission Date: 20151125
  Serious: Yes (Life-Threatening, Hospitalization, Other)
  Sender: FDA-Public Use
  Company Number: TW-COREPHARMA LLC-2015COR00134

PATIENT
  Age: 58 Year
  Sex: Female

DRUGS (1)
  1. ALPRAZOLAM. [Suspect]
     Active Substance: ALPRAZOLAM
     Dosage: 15 MG, ONCE

REACTIONS (4)
  - Intentional overdose [Recovered/Resolved]
  - Pulmonary embolism [Recovered/Resolved]
  - Coma [Recovered/Resolved]
  - Suicidal ideation [Recovered/Resolved]
